FAERS Safety Report 24605120 (Version 1)
Quarter: 2024Q4

REPORT INFORMATION
  Report Type: Spontaneous
  Country: US (occurrence: US)
  Receive Date: 20241111
  Receipt Date: 20241111
  Transmission Date: 20250115
  Serious: No
  Sender: PARATEK PHARMACEUTICALS
  Company Number: US-PARATEK PHARMACEUTICALS, INC.-2024PTK00155

PATIENT
  Age: 7 Decade
  Sex: Female

DRUGS (3)
  1. NUZYRA [Suspect]
     Active Substance: OMADACYCLINE
     Indication: Cellulitis
     Dosage: 450 MG, 1X/DAY LOADING DOSE
     Route: 048
     Dates: start: 20240219, end: 20240220
  2. NUZYRA [Suspect]
     Active Substance: OMADACYCLINE
     Dosage: UNK UNK, 1X/DAY
     Route: 048
     Dates: start: 20240221
  3. UNSPECIFIED INGREDIENT [Suspect]
     Active Substance: UNSPECIFIED INGREDIENT
     Route: 048

REACTIONS (2)
  - Cellulitis [Not Recovered/Not Resolved]
  - Drug ineffective [Unknown]

NARRATIVE: CASE EVENT DATE: 20240224
